FAERS Safety Report 20834335 (Version 1)
Quarter: 2022Q2

REPORT INFORMATION
  Report Type: Other
  Country: SI (occurrence: SI)
  Receive Date: 20220516
  Receipt Date: 20220516
  Transmission Date: 20220721
  Serious: Yes (Death, Hospitalization)
  Sender: FDA-Public Use
  Company Number: SI-CELLTRION HEALTHCARE HUNGARY KFT-2022SI004699

PATIENT

DRUGS (3)
  1. RITUXIMAB [Suspect]
     Active Substance: RITUXIMAB
     Indication: Rheumatoid arthritis
     Dosage: UNK
     Route: 058
     Dates: start: 201712
  2. RITUXIMAB [Suspect]
     Active Substance: RITUXIMAB
     Dosage: SECOND CYCLE
     Route: 058
     Dates: start: 201807
  3. METHYLPREDNISOLONE [Concomitant]
     Active Substance: METHYLPREDNISOLONE
     Indication: Rheumatoid arthritis
     Dosage: TAPER
     Route: 065
     Dates: start: 201712

REACTIONS (5)
  - Immune-mediated adverse reaction [Fatal]
  - Abdominal pain [Fatal]
  - Fall [Fatal]
  - Malaise [Fatal]
  - Weight decreased [Fatal]

NARRATIVE: CASE EVENT DATE: 20180701
